FAERS Safety Report 22972061 (Version 2)
Quarter: 2023Q4

REPORT INFORMATION
  Report Type: Report from Study
  Country: GB (occurrence: GB)
  Receive Date: 20230922
  Receipt Date: 20231012
  Transmission Date: 20240110
  Serious: Yes (Other)
  Sender: FDA-Public Use
  Company Number: GB-TEVA-2023-GB-2928792

PATIENT
  Age: 52 Year
  Sex: Female

DRUGS (1)
  1. COPAXONE [Suspect]
     Active Substance: GLATIRAMER ACETATE
     Indication: Multiple sclerosis
     Dates: start: 20220827, end: 20230914

REACTIONS (7)
  - Anaphylactoid reaction [Recovered/Resolved]
  - Feeling abnormal [Recovered/Resolved]
  - Chest discomfort [Recovered/Resolved]
  - Dyspnoea [Recovered/Resolved]
  - Heart rate decreased [Recovered/Resolved]
  - Dizziness [Unknown]
  - Immediate post-injection reaction [Recovered/Resolved]

NARRATIVE: CASE EVENT DATE: 20230913
